FAERS Safety Report 13385107 (Version 1)
Quarter: 2017Q1

REPORT INFORMATION
  Report Type: Spontaneous
  Country: GB (occurrence: GB)
  Receive Date: 20170329
  Receipt Date: 20170329
  Transmission Date: 20170429
  Serious: Yes (Other)
  Sender: FDA-Public Use
  Company Number: GB-ALLERGAN-1711413US

PATIENT
  Age: 34 Year
  Sex: Male

DRUGS (1)
  1. GANFORT [Suspect]
     Active Substance: BIMATOPROST\TIMOLOL
     Indication: INTRAOCULAR PRESSURE INCREASED
     Dosage: 1 GTT, QD
     Route: 047
     Dates: start: 2016

REACTIONS (3)
  - Ocular discomfort [Unknown]
  - Ocular hyperaemia [Unknown]
  - Eye pain [Not Recovered/Not Resolved]

NARRATIVE: CASE EVENT DATE: 201701
